FAERS Safety Report 8787140 (Version 2)
Quarter: 2012Q4

REPORT INFORMATION
  Report Type: 
  Country: US (occurrence: US)
  Receive Date: 20120914
  Receipt Date: 20121003
  Transmission Date: 20130627
  Serious: No
  Sender: FDA-Public Use
  Company Number: US-VERTEX PHARMACEUTICAL INC.-AE-2012-010976

PATIENT
  Sex: Female
  Weight: 124 kg

DRUGS (4)
  1. VX-950 [Suspect]
     Indication: HEPATITIS C
     Dosage: 750 mg, tid
     Route: 048
     Dates: start: 2012
  2. VX-950 [Suspect]
     Dosage: UNK
  3. PEGASYS [Suspect]
     Indication: HEPATITIS C
     Dosage: 180 ?g,weekly
     Route: 058
     Dates: start: 2012
  4. RIBASPHERE [Suspect]
     Indication: HEPATITIS C
     Dosage: 1200 mg, qd
     Dates: start: 2012

REACTIONS (1)
  - Treatment failure [Unknown]
